FAERS Safety Report 18365990 (Version 1)
Quarter: 2020Q4

REPORT INFORMATION
  Report Type: Spontaneous
  Country: US (occurrence: US)
  Receive Date: 20201009
  Receipt Date: 20201009
  Transmission Date: 20210114
  Serious: No
  Sender: FDA-Public Use
  Company Number: US-PFIZER INC-2020387489

PATIENT
  Age: 91 Year
  Sex: Male
  Weight: 85.28 kg

DRUGS (1)
  1. GEMCITABINE HYDROCHLORIDE. [Suspect]
     Active Substance: GEMCITABINE HYDROCHLORIDE
     Indication: BLADDER CANCER
     Dosage: 1 GRAM MIXED IN 50 ML OF SALINE
     Route: 043
     Dates: start: 20200922

REACTIONS (5)
  - Product use in unapproved indication [Unknown]
  - Bladder pain [Recovering/Resolving]
  - Product use issue [Unknown]
  - Injection site pain [Recovering/Resolving]
  - Off label use [Unknown]

NARRATIVE: CASE EVENT DATE: 20200922
